FAERS Safety Report 24572941 (Version 1)
Quarter: 2024Q4

REPORT INFORMATION
  Report Type: Spontaneous
  Country: US (occurrence: US)
  Receive Date: 20241101
  Receipt Date: 20241101
  Transmission Date: 20250115
  Serious: Yes (Death, Hospitalization)
  Sender: AMGEN
  Company Number: US-AMGEN-USASP2024215276

PATIENT
  Age: 51 Year
  Sex: Female

DRUGS (1)
  1. PREDNISONE [Suspect]
     Active Substance: PREDNISONE
     Indication: Drug-induced liver injury
     Dosage: 1 MILLIGRAM/KILOGRAM
     Route: 065

REACTIONS (9)
  - Death [Fatal]
  - Troponin I increased [Unknown]
  - Multiple organ dysfunction syndrome [Unknown]
  - Sepsis [Unknown]
  - Blood creatine phosphokinase increased [Unknown]
  - Blood urea increased [Unknown]
  - Anuria [Unknown]
  - Hyperbilirubinaemia [Unknown]
  - Off label use [Unknown]
